FAERS Safety Report 17043816 (Version 1)
Quarter: 2019Q4

REPORT INFORMATION
  Report Type: Spontaneous
  Country: US (occurrence: US)
  Receive Date: 20191018
  Receipt Date: 20191018
  Transmission Date: 20200122
  Serious: No
  Sender: FDA-Public Use
  Company Number: None

PATIENT
  Age: 71 Year
  Sex: Male

DRUGS (1)
  1. HUMIRA [Suspect]
     Active Substance: ADALIMUMAB
     Indication: PSORIASIS
     Dosage: ON HOLD
     Route: 058
     Dates: start: 201603

REACTIONS (2)
  - Limb injury [None]
  - Therapy cessation [None]

NARRATIVE: CASE EVENT DATE: 20191015
